FAERS Safety Report 7490548-8 (Version None)
Quarter: 2011Q2

REPORT INFORMATION
  Report Type: 
  Country: None (occurrence: None)
  Receive Date: 20110519
  Receipt Date: 20110517
  Transmission Date: 20111010
  Serious: Yes (Other)
  Sender: FDA-Public Use
  Company Number: US-PFIZER INC-2011106086

PATIENT
  Sex: Female
  Weight: 48.98 kg

DRUGS (4)
  1. TIKOSYN [Suspect]
     Indication: ATRIAL TACHYCARDIA
     Dosage: 500 UG, 2X/DAY
     Route: 048
     Dates: start: 20071001
  2. DIGOXIN [Concomitant]
     Dosage: UNK
  3. EVISTA [Concomitant]
     Dosage: UNK
  4. CALCITONIN, SALMON [Concomitant]
     Dosage: UNK

REACTIONS (1)
  - PARKINSON'S DISEASE [None]
